FAERS Safety Report 17431512 (Version 1)
Quarter: 2020Q1

REPORT INFORMATION
  Report Type: Report from Study
  Country: ES (occurrence: ES)
  Receive Date: 20200218
  Receipt Date: 20200218
  Transmission Date: 20200409
  Serious: Yes (Life-Threatening, Hospitalization)
  Sender: FDA-Public Use
  Company Number: ES-CELGENEUS-ESP-20180407548

PATIENT
  Age: 81 Year
  Sex: Female
  Weight: 53 kg

DRUGS (16)
  1. PLACEBO [Suspect]
     Active Substance: UNSPECIFIED INGREDIENT
     Indication: ACUTE MYELOID LEUKAEMIA
     Dosage: 500 MILLIGRAM
     Route: 048
     Dates: start: 20180319, end: 20180409
  2. AZACITIDINE. [Suspect]
     Active Substance: AZACITIDINE
     Dosage: 112.5 MILLIGRAM/SQ. METER
     Route: 058
     Dates: start: 20180618, end: 20180622
  3. OMEPRAZOLE. [Concomitant]
     Active Substance: OMEPRAZOLE
     Indication: FEBRILE NEUTROPENIA
     Route: 048
  4. NYSTATIN. [Concomitant]
     Active Substance: NYSTATIN
     Indication: FEBRILE NEUTROPENIA
     Dosage: 20 MILLILITER
     Route: 048
     Dates: start: 20180410, end: 20180521
  5. AZACITIDINE. [Suspect]
     Active Substance: AZACITIDINE
     Indication: ACUTE MYELOID LEUKAEMIA
     Dosage: 112.5 MILLIGRAM
     Route: 058
     Dates: start: 20180319, end: 20180327
  6. OMEPRAZOLE. [Concomitant]
     Active Substance: OMEPRAZOLE
     Dosage: 20 MILLIGRAM
     Route: 048
     Dates: start: 20180410, end: 20180416
  7. AZACITIDINE. [Suspect]
     Active Substance: AZACITIDINE
     Dosage: 112.5 MILLIGRAM/SQ. METER
     Route: 058
     Dates: start: 20180625, end: 20180626
  8. FLUCONAZOL [Concomitant]
     Active Substance: FLUCONAZOLE
     Indication: PRODUCT USED FOR UNKNOWN INDICATION
     Route: 065
     Dates: start: 20180116, end: 20180319
  9. AZACITIDINE. [Suspect]
     Active Substance: AZACITIDINE
     Dosage: 112.5 MILLIGRAM/SQ. METER
     Route: 058
     Dates: start: 20180430, end: 20180501
  10. NYSTATIN. [Concomitant]
     Active Substance: NYSTATIN
     Dosage: 10 MILLILITER
     Route: 048
  11. METOCLOPRAMIDE. [Concomitant]
     Active Substance: METOCLOPRAMIDE
     Indication: PRODUCT USED FOR UNKNOWN INDICATION
     Dosage: 300 MILLIGRAM
     Route: 041
     Dates: start: 20180410, end: 20180416
  12. AZACITIDINE. [Suspect]
     Active Substance: AZACITIDINE
     Dosage: 112.5 MILLIGRAM/SQ. METER
     Route: 058
     Dates: start: 20180528, end: 20180529
  13. EPROSARTAN [Concomitant]
     Active Substance: EPROSARTAN
     Indication: PRODUCT USED FOR UNKNOWN INDICATION
     Route: 065
  14. RANITIDINE. [Concomitant]
     Active Substance: RANITIDINE
     Indication: PRODUCT USED FOR UNKNOWN INDICATION
     Dosage: 75 MILLIGRAM
     Route: 048
     Dates: start: 20180326
  15. AZACITIDINE. [Suspect]
     Active Substance: AZACITIDINE
     Dosage: 112.5 MILLIGRAM/SQ. METER
     Route: 058
     Dates: start: 20180423, end: 20180427
  16. AZACITIDINE. [Suspect]
     Active Substance: AZACITIDINE
     Dosage: 112.5 MILLIGRAM/SQ. METER
     Route: 058
     Dates: start: 20180521, end: 20180525

REACTIONS (1)
  - Febrile neutropenia [Recovered/Resolved]

NARRATIVE: CASE EVENT DATE: 20180409
